FAERS Safety Report 9617967 (Version 2)
Quarter: 2013Q4

REPORT INFORMATION
  Report Type: Report from Study
  Country: US (occurrence: US)
  Receive Date: 20131011
  Receipt Date: 20131011
  Transmission Date: 20140711
  Serious: Yes (Other)
  Sender: FDA-Public Use
  Company Number: US-ABBVIE-13P-163-1081687-00

PATIENT
  Age: 66 Year
  Sex: Female
  Weight: 77.18 kg

DRUGS (2)
  1. HUMIRA [Suspect]
     Indication: CROHN^S DISEASE
     Route: 058
     Dates: start: 20121120
  2. HUMIRA [Suspect]
     Indication: COLITIS ULCERATIVE

REACTIONS (9)
  - Myocardial infarction [Unknown]
  - Cardiac disorder [Unknown]
  - Atrial fibrillation [Unknown]
  - Fatigue [Unknown]
  - Hypertension [Unknown]
  - Syncope [Unknown]
  - Cardiac failure [Unknown]
  - Asthenia [Unknown]
  - Tremor [Unknown]
